FAERS Safety Report 4565343-X (Version None)
Quarter: 2005Q1

REPORT INFORMATION
  Report Type: 
  Country: None (occurrence: None)
  Receive Date: 20050125
  Receipt Date: 20050125
  Transmission Date: 20050727
  Serious: Yes (Life-Threatening)
  Sender: FDA-Public Use
  Company Number: None

PATIENT
  Age: 9 Year
  Sex: Male
  Weight: 35.3806 kg

DRUGS (3)
  1. GEODON [Suspect]
     Indication: AFFECTIVE DISORDER
     Dosage: 40MG PO /10 MG PO BID /IMSTAT
     Dates: start: 20041020, end: 20041021
  2. GEODON [Suspect]
     Indication: BIPOLAR I DISORDER
     Dosage: 40MG PO /10 MG PO BID /IMSTAT
     Dates: start: 20041020, end: 20041021
  3. CLONIDINE [Suspect]
     Indication: ATTENTION DEFICIT/HYPERACTIVITY DISORDER
     Dosage: 0.2 MG HS ORAL
     Route: 048
     Dates: start: 20041020, end: 20041021

REACTIONS (7)
  - AGGRESSION [None]
  - AGITATION [None]
  - BUNDLE BRANCH BLOCK RIGHT [None]
  - ELECTROCARDIOGRAM QT CORRECTED INTERVAL PROLONGED [None]
  - ELECTROCARDIOGRAM QT PROLONGED [None]
  - SINUS ARRHYTHMIA [None]
  - SINUS BRADYCARDIA [None]
